FAERS Safety Report 17004913 (Version 6)
Quarter: 2021Q1

REPORT INFORMATION
  Report Type: Report from Study
  Country: US (occurrence: US)
  Receive Date: 20191107
  Receipt Date: 20210224
  Transmission Date: 20210419
  Serious: Yes (Hospitalization, Other)
  Sender: FDA-Public Use
  Company Number: US-UCBSA-2019046000

PATIENT
  Age: 55 Year
  Sex: Male
  Weight: 95 kg

DRUGS (3)
  1. CIMZIA [Suspect]
     Active Substance: CERTOLIZUMAB PEGOL
     Indication: CROHN^S DISEASE
     Dosage: UNK
     Dates: end: 20200302
  2. CERTOLIZUMAB PEGOL [Suspect]
     Active Substance: CERTOLIZUMAB PEGOL
     Indication: CROHN^S DISEASE
     Dosage: 200 MILLIGRAM, EV 3 WEEKS
     Route: 058
     Dates: start: 2006, end: 20201220
  3. OXYCODONE [Concomitant]
     Active Substance: OXYCODONE
     Indication: PAIN

REACTIONS (10)
  - Haematochezia [Recovered/Resolved]
  - Arthralgia [Unknown]
  - Lung neoplasm malignant [Not Recovered/Not Resolved]
  - Emphysema [Recovered/Resolved with Sequelae]
  - Lung disorder [Not Recovered/Not Resolved]
  - Off label use [Unknown]
  - Blood pressure increased [Recovered/Resolved with Sequelae]
  - Pain in extremity [Unknown]
  - Myocardial infarction [Recovered/Resolved]
  - Drug ineffective [Unknown]

NARRATIVE: CASE EVENT DATE: 2006
